FAERS Safety Report 15643237 (Version 2)
Quarter: 2019Q1

REPORT INFORMATION
  Report Type: Spontaneous
  Country: US (occurrence: US)
  Receive Date: 20181121
  Receipt Date: 20190121
  Transmission Date: 20190417
  Serious: No
  Sender: FDA-Public Use
  Company Number: US-SA-2018SA317014

PATIENT
  Age: 75 Year
  Sex: Male

DRUGS (1)
  1. TOUJEO [Suspect]
     Active Substance: INSULIN GLARGINE
     Indication: TYPE 2 DIABETES MELLITUS
     Dosage: 6 U, QD
     Route: 065
     Dates: start: 20180830

REACTIONS (2)
  - Blood glucose increased [Recovered/Resolved]
  - Drug ineffective [Unknown]
